FAERS Safety Report 26162275 (Version 1)
Quarter: 2025Q4

REPORT INFORMATION
  Report Type: Report from Study
  Country: US (occurrence: US)
  Receive Date: 20251216
  Receipt Date: 20251216
  Transmission Date: 20260117
  Serious: Yes (Death, Hospitalization)
  Sender: JOHNSON AND JOHNSON
  Company Number: US-JNJFOC-20251219049

PATIENT
  Age: 89 Year
  Sex: Male

DRUGS (1)
  1. TECVAYLI [Suspect]
     Active Substance: TECLISTAMAB-CQYV
     Indication: Plasma cell myeloma

REACTIONS (3)
  - Cerebral haemorrhage [Fatal]
  - Fall [Fatal]
  - Head injury [Fatal]

NARRATIVE: CASE EVENT DATE: 20251101
